FAERS Safety Report 7897145-0 (Version None)
Quarter: 2011Q4

REPORT INFORMATION
  Report Type: 
  Country: None (occurrence: None)
  Receive Date: 20111107
  Receipt Date: 20111012
  Transmission Date: 20120403
  Serious: Yes (Other)
  Sender: FDA-Public Use
  Company Number: CA-JNJFOC-20111013219

PATIENT
  Sex: Female
  Weight: 67 kg

DRUGS (3)
  1. MESALAMINE [Concomitant]
     Route: 048
  2. REMICADE [Suspect]
     Indication: COLITIS ULCERATIVE
     Dates: start: 20110125
  3. IMURAN [Concomitant]
     Route: 048

REACTIONS (2)
  - HYPOAESTHESIA [None]
  - HEADACHE [None]
